FAERS Safety Report 10943995 (Version 1)
Quarter: 2015Q1

REPORT INFORMATION
  Report Type: Spontaneous
  Country: GB (occurrence: GB)
  Receive Date: 20150323
  Receipt Date: 20150323
  Transmission Date: 20150721
  Serious: Yes (Disabling, Other)
  Sender: FDA-Public Use
  Company Number: GB-009507513-1503GBR006544

PATIENT
  Age: 31 Year
  Sex: Female
  Weight: 61.6 kg

DRUGS (1)
  1. NEXPLANON [Suspect]
     Active Substance: ETONOGESTREL
     Indication: CONTRACEPTION
     Route: 059
     Dates: start: 201412

REACTIONS (3)
  - Hypersensitivity [Unknown]
  - Infection [Unknown]
  - Implant site erythema [Unknown]

NARRATIVE: CASE EVENT DATE: 20141201
